FAERS Safety Report 11737995 (Version 1)
Quarter: 2015Q4

REPORT INFORMATION
  Report Type: Report from Study
  Country: JP (occurrence: JP)
  Receive Date: 20151113
  Receipt Date: 20151113
  Transmission Date: 20160304
  Serious: Yes (Death, Other)
  Sender: FDA-Public Use
  Company Number: JP-OTSUKA-2015_013765

PATIENT

DRUGS (5)
  1. AMINOVACT [Concomitant]
     Indication: HYPOALBUMINAEMIA
     Dosage: 14.22 G/DAY
     Route: 048
     Dates: end: 20150408
  2. LACTULOSE. [Concomitant]
     Active Substance: LACTULOSE
     Indication: HEPATIC ENCEPHALOPATHY
     Dosage: 30 ML/DAY
     Route: 048
     Dates: end: 20150408
  3. TOLVAPTAN [Suspect]
     Active Substance: TOLVAPTAN
     Indication: OEDEMA DUE TO HEPATIC DISEASE
     Dosage: 3.75 MG, QD
     Route: 048
     Dates: start: 20150108, end: 20150408
  4. INCHINKOUTOU [Concomitant]
     Indication: JAUNDICE
     Dosage: 7.5 G/DAY
     Route: 048
     Dates: end: 20150408
  5. URSODEOXYCHOLIC ACID [Concomitant]
     Active Substance: URSODIOL
     Indication: LIVER DISORDER
     Dosage: 600 MG/DAY
     Route: 048
     Dates: end: 20150408

REACTIONS (1)
  - Hepatic failure [Fatal]
